APPROVED DRUG PRODUCT: NEURONTIN
Active Ingredient: GABAPENTIN
Strength: 250MG/5ML
Dosage Form/Route: SOLUTION;ORAL
Application: N021129 | Product #001 | TE Code: AA
Applicant: VIATRIS SPECIALTY LLC
Approved: Mar 2, 2000 | RLD: Yes | RS: Yes | Type: RX